FAERS Safety Report 7322957-1 (Version None)
Quarter: 2011Q1

REPORT INFORMATION
  Report Type: 
  Country: None (occurrence: None)
  Receive Date: 20110301
  Receipt Date: 20110218
  Transmission Date: 20110831
  Serious: Yes (Other)
  Sender: FDA-Public Use
  Company Number: PHFR2007GB00515

PATIENT
  Sex: Male

DRUGS (1)
  1. CLOZARIL [Suspect]
     Indication: SCHIZOPHRENIA
     Dosage: 400 MG, UNK
     Route: 048
     Dates: start: 20050901, end: 20070101

REACTIONS (7)
  - HYDRONEPHROSIS [None]
  - URINARY RETENTION [None]
  - BLOOD COUNT ABNORMAL [None]
  - MENTAL IMPAIRMENT [None]
  - RENAL FAILURE CHRONIC [None]
  - RENAL IMPAIRMENT [None]
  - BLADDER OBSTRUCTION [None]
